FAERS Safety Report 9260138 (Version 1)
Quarter: 2013Q2

REPORT INFORMATION
  Report Type: Spontaneous
  Country: TR (occurrence: TR)
  Receive Date: 20130429
  Receipt Date: 20130429
  Transmission Date: 20140414
  Serious: Yes (Other)
  Sender: FDA-Public Use
  Company Number: TR-JNJFOC-20130409462

PATIENT
  Age: 15 Year
  Sex: Male

DRUGS (5)
  1. DUROGESIC [Suspect]
     Indication: BREAKTHROUGH PAIN
     Route: 062
  2. DUROGESIC [Suspect]
     Indication: BREAKTHROUGH PAIN
     Route: 062
  3. TRAMADOL [Suspect]
     Indication: BREAKTHROUGH PAIN
     Route: 065
  4. TRAMADOL [Suspect]
     Indication: BREAKTHROUGH PAIN
     Route: 065
  5. FENTANYL [Suspect]
     Indication: BREAKTHROUGH PAIN
     Dosage: IF NEEDED
     Route: 048

REACTIONS (3)
  - Sensory loss [Unknown]
  - Pain [Unknown]
  - Restlessness [Unknown]
